FAERS Safety Report 5262565-X (Version None)
Quarter: 2007Q1

REPORT INFORMATION
  Report Type: 
  Country: None (occurrence: None)
  Receive Date: 20070312
  Receipt Date: 20070305
  Transmission Date: 20070707
  Serious: Yes (Death)
  Sender: FDA-Public Use
  Company Number: IT-BRISTOL-MYERS SQUIBB COMPANY-13693015

PATIENT
  Age: 83 Year
  Sex: Female

DRUGS (1)
  1. PACLITAXEL [Suspect]
     Indication: BREAST CANCER
     Route: 042

REACTIONS (5)
  - ANAEMIA [None]
  - CAPILLARY PERMEABILITY INCREASED [None]
  - HYPOVOLAEMIC SHOCK [None]
  - RENAL FAILURE [None]
  - SKIN LESION [None]
